FAERS Safety Report 8833192 (Version 2)
Quarter: 2012Q4

REPORT INFORMATION
  Report Type: 
  Country: US (occurrence: US)
  Receive Date: 20121010
  Receipt Date: 20121026
  Transmission Date: 20130627
  Serious: Yes (Other)
  Sender: FDA-Public Use
  Company Number: US-PFIZER INC-2012247387

PATIENT
  Age: 46 Year
  Sex: Male

DRUGS (8)
  1. ATORVASTATIN CALCIUM [Suspect]
     Dosage: UNK
  2. LIPITOR [Suspect]
     Indication: HYPERLIPIDAEMIA
     Dosage: 20 mg, daily
     Route: 048
     Dates: start: 20100216
  3. LIPITOR [Suspect]
     Indication: DEEP VEIN THROMBOSIS
  4. ASPIRIN [Suspect]
     Indication: ARTERIOSCLEROSIS
     Dosage: UNK
     Route: 048
     Dates: start: 20100216
  5. ASPIRIN [Suspect]
     Dosage: UNK
     Route: 048
     Dates: start: 20120629
  6. WARFARIN [Suspect]
     Indication: DEEP VEIN THROMBOSIS
     Dosage: 3 mg, 1x/day
     Route: 048
     Dates: start: 200611
  7. WARFARIN [Suspect]
     Dosage: 5 mg, on and off multiple times
  8. WARFARIN [Suspect]
     Dosage: 20 mg, on and off multiple times

REACTIONS (2)
  - Amputation [Unknown]
  - Treatment noncompliance [Unknown]
